FAERS Safety Report 14435460 (Version 1)
Quarter: 2018Q1

REPORT INFORMATION
  Report Type: Spontaneous
  Country: US (occurrence: US)
  Receive Date: 20180125
  Receipt Date: 20180125
  Transmission Date: 20180509
  Serious: No
  Sender: FDA-Public Use
  Company Number: US-UNITED THERAPEUTICS-UNT-2017-012248

PATIENT
  Age: 50 Year
  Sex: Female

DRUGS (11)
  1. ORENITRAM [Suspect]
     Active Substance: TREPROSTINIL
     Dosage: 3 MG, TID
     Route: 048
  2. AMBRISENTAN [Suspect]
     Active Substance: AMBRISENTAN
     Indication: PULMONARY ARTERIAL HYPERTENSION
  3. ORENITRAM [Suspect]
     Active Substance: TREPROSTINIL
     Indication: PULMONARY HYPERTENSION
     Dosage: 3.5 MG, BID
     Route: 048
  4. ADEMPAS [Suspect]
     Active Substance: RIOCIGUAT
     Indication: PULMONARY ARTERIAL HYPERTENSION
     Dosage: 7.5 MG, UNK
     Route: 065
     Dates: start: 20151014
  5. ORENITRAM [Suspect]
     Active Substance: TREPROSTINIL
     Dosage: 3.75 MG, BID
     Route: 048
  6. ORENITRAM [Suspect]
     Active Substance: TREPROSTINIL
     Dosage: 8 MG, UNK
     Route: 048
  7. ORENITRAM [Suspect]
     Active Substance: TREPROSTINIL
     Dosage: 2.5 MG, TID
     Route: 048
  8. ORENITRAM [Suspect]
     Active Substance: TREPROSTINIL
     Indication: PULMONARY ARTERIAL HYPERTENSION
     Dosage: 4 MG, BID
     Route: 048
     Dates: start: 20170111
  9. AMBRISENTAN [Suspect]
     Active Substance: AMBRISENTAN
     Indication: PULMONARY HYPERTENSION
     Dosage: 10 MG, QD
     Route: 048
     Dates: start: 20090429
  10. ORENITRAM [Suspect]
     Active Substance: TREPROSTINIL
     Indication: PULMONARY ARTERIAL HYPERTENSION
     Dosage: 3.625 MG, BID
     Route: 048
  11. ADEMPAS [Suspect]
     Active Substance: RIOCIGUAT
     Dosage: 2.5 MG, TID
     Route: 065

REACTIONS (7)
  - Nausea [Not Recovered/Not Resolved]
  - Diarrhoea [Not Recovered/Not Resolved]
  - Headache [Not Recovered/Not Resolved]
  - Malaise [Unknown]
  - Pain in jaw [Not Recovered/Not Resolved]
  - Frequent bowel movements [Not Recovered/Not Resolved]
  - Flushing [Not Recovered/Not Resolved]

NARRATIVE: CASE EVENT DATE: 2017
